FAERS Safety Report 6689107-6 (Version None)
Quarter: 2010Q2

REPORT INFORMATION
  Report Type: 
  Country: None (occurrence: None)
  Receive Date: 20100415
  Receipt Date: 20100408
  Transmission Date: 20101027
  Serious: Yes (Hospitalization)
  Sender: FDA-Public Use
  Company Number: 2010SP020429

PATIENT
  Age: 44 Year
  Sex: Male

DRUGS (1)
  1. PEGATRON (PEGYLATED INTERFERON ALFA-2B W/ RIBAVIRIN) [Suspect]
     Indication: DRUG USE FOR UNKNOWN INDICATION

REACTIONS (1)
  - PERICARDITIS [None]
